FAERS Safety Report 22651780 (Version 2)
Quarter: 2023Q4

REPORT INFORMATION
  Report Type: Spontaneous
  Country: US (occurrence: US)
  Receive Date: 20230628
  Receipt Date: 20231206
  Transmission Date: 20240109
  Serious: Yes (Other)
  Sender: FDA-Public Use
  Company Number: US-CTI BIOPHARMA-2023US03613

PATIENT

DRUGS (2)
  1. VONJO [Suspect]
     Active Substance: PACRITINIB
     Indication: Myelodysplastic syndrome
     Dosage: 200 MG, QD
     Route: 048
     Dates: start: 20230221
  2. VONJO [Suspect]
     Active Substance: PACRITINIB
     Dosage: 200 MG, BID
     Route: 048

REACTIONS (2)
  - Dysarthria [Not Recovered/Not Resolved]
  - Off label use [Unknown]
